FAERS Safety Report 8766462 (Version 1)
Quarter: 2012Q4

REPORT INFORMATION
  Report Type: 
  Country: JP (occurrence: JP)
  Receive Date: 20120904
  Receipt Date: 20120904
  Transmission Date: 20130627
  Serious: Yes (Other)
  Sender: FDA-Public Use
  Company Number: JP-ASTRAZENECA-2012SE65903

PATIENT
  Sex: Female

DRUGS (1)
  1. MEROPEN [Suspect]
     Route: 042
     Dates: start: 20090201

REACTIONS (2)
  - Exposure during pregnancy [Unknown]
  - Foetal death [Unknown]
